FAERS Safety Report 8233998-4 (Version None)
Quarter: 2012Q1

REPORT INFORMATION
  Report Type: 
  Country: None (occurrence: None)
  Receive Date: 20120322
  Receipt Date: 20120313
  Transmission Date: 20120608
  Serious: Yes (Hospitalization, Other)
  Sender: FDA-Public Use
  Company Number: ACO_29306_2012

PATIENT
  Age: 66 Year
  Sex: Male

DRUGS (9)
  1. SIMVASTATIN [Concomitant]
  2. PRILOSEC [Concomitant]
  3. BACLOFEN [Concomitant]
  4. NIZORAL [Concomitant]
  5. TIZANIDINE HCL [Concomitant]
  6. DOXAZOSIN MESYLATE [Concomitant]
  7. MYCOLOG-II (NYSTATIN, TRIAMCINOLONE ACETONIDE) [Concomitant]
  8. AMPYRA [Suspect]
     Indication: GAIT DISTURBANCE
     Dosage: 10 MG, Q 12 HRS, ORAL
     Route: 048
     Dates: start: 20100601, end: 20120113
  9. PROCTOZONE-H (HYDROCORTISONE) [Concomitant]

REACTIONS (6)
  - NERVOUS SYSTEM DISORDER [None]
  - SPEECH DISORDER [None]
  - APHASIA [None]
  - FEELING ABNORMAL [None]
  - URINARY TRACT INFECTION [None]
  - CONVULSION [None]
